FAERS Safety Report 11911234 (Version 1)
Quarter: 2016Q1

REPORT INFORMATION
  Report Type: Spontaneous
  Country: US (occurrence: US)
  Receive Date: 20160112
  Receipt Date: 20160112
  Transmission Date: 20160526
  Serious: Yes (Other)
  Sender: FDA-Public Use
  Company Number: US-PFIZER INC-2016005833

PATIENT
  Sex: Male

DRUGS (3)
  1. LYRICA [Suspect]
     Active Substance: PREGABALIN
     Indication: ANXIETY
  2. VALIUM [Concomitant]
     Active Substance: DIAZEPAM
     Dosage: UNK
  3. LYRICA [Suspect]
     Active Substance: PREGABALIN
     Indication: PANIC DISORDER
     Dosage: 225 MG, DAILY (75MG IN THE MORNING, 150MG AT NIGHT)
     Dates: start: 201502

REACTIONS (11)
  - Product use issue [Unknown]
  - Diplopia [Unknown]
  - Memory impairment [Unknown]
  - Lacrimation increased [Unknown]
  - Feeling abnormal [Unknown]
  - Disturbance in attention [Unknown]
  - Fatigue [Unknown]
  - Suicidal ideation [Unknown]
  - Weight increased [Unknown]
  - Vision blurred [Unknown]
  - Alopecia [Unknown]
